FAERS Safety Report 15825274 (Version 7)
Quarter: 2019Q2

REPORT INFORMATION
  Report Type: Report from Study
  Country: CN (occurrence: CN)
  Receive Date: 20190115
  Receipt Date: 20190624
  Transmission Date: 20190711
  Serious: Yes (Death, Hospitalization)
  Sender: FDA-Public Use
  Company Number: CN-ROCHE-2242777

PATIENT
  Age: 65 Year
  Sex: Female
  Weight: 47 kg

DRUGS (50)
  1. LEUCOGEN [Concomitant]
     Active Substance: LEUCOGEN
     Route: 065
     Dates: start: 20181117, end: 20181204
  2. LEUCOGEN [Concomitant]
     Active Substance: LEUCOGEN
     Route: 065
     Dates: start: 20181213, end: 20181225
  3. POTASSIUM CHLORIDE. [Concomitant]
     Active Substance: POTASSIUM CHLORIDE
     Route: 065
     Dates: start: 20181229, end: 20181231
  4. BIAPENEM [Concomitant]
     Active Substance: BIAPENEM
     Route: 065
     Dates: start: 20190109, end: 20190109
  5. PEMETREXED. [Suspect]
     Active Substance: PEMETREXED
     Indication: NON-SMALL CELL LUNG CANCER STAGE IV
     Dosage: PARTICIPANTS WILL RECEIVE IV INFUSION OF 500 MG/M^2 PEMETREXED ON DAY 1 Q3W FOR 4 OR 6 CYCLES (CYCLE
     Route: 042
     Dates: start: 20180929
  6. RABEPRAZOLE SODIUM. [Concomitant]
     Active Substance: RABEPRAZOLE SODIUM
     Route: 065
     Dates: start: 20181209, end: 20181211
  7. METOCLOPRAMIDE. [Concomitant]
     Active Substance: METOCLOPRAMIDE
     Indication: VOMITING
     Route: 065
     Dates: start: 20181210, end: 20181212
  8. AZASETRON HYDROCHLORIDE [Concomitant]
     Active Substance: AZASETRON HYDROCHLORIDE
     Indication: VOMITING
     Route: 065
     Dates: start: 20181210, end: 20181212
  9. PALONOSETRON HYDROCHLORIDE. [Concomitant]
     Active Substance: PALONOSETRON HYDROCHLORIDE
     Indication: VOMITING
     Route: 065
     Dates: start: 20181210, end: 20181210
  10. LEUCOGEN [Concomitant]
     Active Substance: LEUCOGEN
     Route: 065
     Dates: start: 20190101, end: 20190101
  11. POTASSIUM CHLORIDE. [Concomitant]
     Active Substance: POTASSIUM CHLORIDE
     Route: 065
     Dates: start: 20181230, end: 20181230
  12. VITAMIN C [Concomitant]
     Active Substance: ASCORBIC ACID
     Route: 065
     Dates: start: 20190104, end: 20190110
  13. ESTAZOLAM. [Concomitant]
     Active Substance: ESTAZOLAM
     Route: 065
     Dates: start: 20181227, end: 20181230
  14. MAGNESIUM SULFATE. [Concomitant]
     Active Substance: MAGNESIUM SULFATE
     Route: 065
     Dates: start: 20190103, end: 20190103
  15. LOBELINE HYDROCHLORIDE [Concomitant]
     Route: 065
     Dates: start: 20190110, end: 20190110
  16. LEUCOGEN [Concomitant]
     Active Substance: LEUCOGEN
     Indication: WHITE BLOOD CELL COUNT INCREASED
     Route: 065
     Dates: start: 20181207, end: 20181212
  17. AMBROXOL HYDROCHLORIDE [Concomitant]
     Active Substance: AMBROXOL HYDROCHLORIDE
     Route: 065
     Dates: start: 20190109, end: 20190109
  18. INDOMETACIN [Concomitant]
     Active Substance: INDOMETHACIN
     Route: 065
     Dates: start: 20181227, end: 20181230
  19. RABEPRAZOLE SODIUM. [Concomitant]
     Active Substance: RABEPRAZOLE SODIUM
     Route: 065
     Dates: start: 20190101, end: 20190101
  20. VITAMIN C [Concomitant]
     Active Substance: ASCORBIC ACID
     Route: 065
     Dates: start: 20190103, end: 20190103
  21. OMEPRAZOLE SODIUM [Concomitant]
     Active Substance: OMEPRAZOLE SODIUM
     Route: 065
     Dates: start: 20190106, end: 20190110
  22. INDOMETACIN [Concomitant]
     Active Substance: INDOMETHACIN
     Route: 065
     Dates: start: 20181226, end: 20181226
  23. INDOMETACIN [Concomitant]
     Active Substance: INDOMETHACIN
     Route: 065
     Dates: start: 20190101, end: 20190105
  24. FOLIC ACID. [Concomitant]
     Active Substance: FOLIC ACID
     Route: 065
     Dates: start: 20180924
  25. RABEPRAZOLE SODIUM. [Concomitant]
     Active Substance: RABEPRAZOLE SODIUM
     Route: 065
     Dates: start: 20181117, end: 20181204
  26. MOSAPRIDE CITRATE [Concomitant]
     Active Substance: MOSAPRIDE CITRATE
     Route: 065
     Dates: start: 20181210, end: 20181212
  27. RUI BAI [Concomitant]
     Route: 065
     Dates: start: 20181226, end: 20181229
  28. TAZOBACTAM SODIUM [Concomitant]
     Active Substance: TAZOBACTAM SODIUM
     Route: 065
     Dates: start: 20181230, end: 20190109
  29. NIFEDIPINE. [Concomitant]
     Active Substance: NIFEDIPINE
     Indication: HYPOTENSION
     Route: 065
     Dates: start: 20190108, end: 20190108
  30. FUROSEMIDE. [Concomitant]
     Active Substance: FUROSEMIDE
     Indication: POLYURIA
     Route: 065
     Dates: start: 20181210, end: 20181210
  31. METOCLOPRAMIDE DIHYDROCHLORIDE [Concomitant]
     Route: 065
     Dates: start: 20190105, end: 20190109
  32. CEFOPERAZONE SODIUM [Concomitant]
     Active Substance: CEFOPERAZONE SODIUM
     Route: 065
     Dates: start: 20181230, end: 20190109
  33. CEFOXITIN SODIUM [Concomitant]
     Active Substance: CEFOXITIN SODIUM
     Route: 065
     Dates: start: 20181227, end: 20181229
  34. AZASETRON HYDROCHLORIDE [Concomitant]
     Active Substance: AZASETRON HYDROCHLORIDE
     Route: 065
     Dates: start: 20181210, end: 20181212
  35. LACTULOSE. [Concomitant]
     Active Substance: LACTULOSE
     Indication: CONSTIPATION
     Route: 048
     Dates: start: 20181210, end: 20181212
  36. BSS [Concomitant]
     Active Substance: CALCIUM CHLORIDE\MAGNESIUM CHLORIDE\POTASSIUM CHLORIDE\SODIUM ACETATE\SODIUM CHLORIDE\SODIUM CITRATE
     Route: 065
     Dates: start: 20181210, end: 20181212
  37. METOCLOPRAMIDE DIHYDROCHLORIDE [Concomitant]
     Indication: VOMITING
     Route: 065
     Dates: start: 20181210, end: 20181212
  38. EUTHYROX [Concomitant]
     Active Substance: LEVOTHYROXINE SODIUM
     Route: 065
     Dates: start: 20190103, end: 20190107
  39. MANNITOL. [Concomitant]
     Active Substance: MANNITOL
     Route: 065
     Dates: start: 20190108, end: 20190110
  40. LIDOCAINE HYDROCHLORIDE. [Concomitant]
     Active Substance: LIDOCAINE HYDROCHLORIDE
     Indication: LOCAL ANAESTHESIA
     Route: 065
     Dates: start: 20181227, end: 20181227
  41. DI YU SHENG BAI PIAN [Concomitant]
     Route: 065
     Dates: start: 20181207, end: 20181212
  42. ATEZOLIZUMAB. [Suspect]
     Active Substance: ATEZOLIZUMAB
     Indication: NON-SMALL CELL LUNG CANCER STAGE IV
     Dosage: PARTICIPANTS WILL RECEIVE IV INFUSION OF 1200 MG ATEZOLIZUMAB ON DAY 1 Q3W FOR 4 OR 6 CYCLES (CYCLE
     Route: 042
     Dates: start: 20180929
  43. CISPLATIN. [Suspect]
     Active Substance: CISPLATIN
     Indication: NON-SMALL CELL LUNG CANCER STAGE IV
     Dosage: PARTICIPANTS WILL RECEIVE IV INFUSION OF 75 MG/M^2 CISPLATIN ON DAY 1 Q3W FOR 4 OR 6 CYCLES (CYCLE L
     Route: 042
     Dates: start: 20180929
  44. ALPRAZOLAM. [Concomitant]
     Active Substance: ALPRAZOLAM
     Indication: INSOMNIA
     Route: 065
     Dates: start: 20181209, end: 20181212
  45. RUI BAI [Concomitant]
     Route: 065
     Dates: start: 20181206, end: 20181206
  46. PALONOSETRON HYDROCHLORIDE. [Concomitant]
     Active Substance: PALONOSETRON HYDROCHLORIDE
     Route: 065
     Dates: start: 20181210, end: 20181210
  47. POTASSIUM CHLORIDE. [Concomitant]
     Active Substance: POTASSIUM CHLORIDE
     Route: 065
     Dates: start: 20190102, end: 20190110
  48. PANTOPRAZOLE SODIUM. [Concomitant]
     Active Substance: PANTOPRAZOLE SODIUM
     Route: 065
     Dates: start: 20190103, end: 20190103
  49. PHENOBARBITAL SODIUM. [Concomitant]
     Active Substance: PHENOBARBITAL SODIUM
     Route: 065
     Dates: start: 20190109, end: 20190109
  50. NIKETHAMIDE [Concomitant]
     Active Substance: NIKETHAMIDE
     Route: 065
     Dates: start: 20190110, end: 20190110

REACTIONS (1)
  - Loss of consciousness [Fatal]

NARRATIVE: CASE EVENT DATE: 20190103
